FAERS Safety Report 4606486-1 (Version None)
Quarter: 2005Q1

REPORT INFORMATION
  Report Type: 
  Country: None (occurrence: None)
  Receive Date: 20050311
  Receipt Date: 20050302
  Transmission Date: 20050727
  Serious: Yes (Death, Hospitalization)
  Sender: FDA-Public Use
  Company Number: BR-MERCK-0503BRA00017

PATIENT
  Age: 75 Year
  Sex: Male

DRUGS (9)
  1. PRIMAXIN [Suspect]
     Indication: PYREXIA
     Route: 051
  2. PRIMAXIN [Suspect]
     Indication: LEUKOCYTOSIS
     Route: 051
  3. VANCOMYCIN [Concomitant]
     Indication: SEPSIS
     Route: 065
  4. CEFEPIME [Concomitant]
     Route: 065
  5. CEFTAZIDIME [Concomitant]
     Route: 065
  6. CLINDAMYCIN [Concomitant]
     Indication: PYREXIA
     Route: 065
  7. CLINDAMYCIN [Concomitant]
     Indication: LEUKOCYTOSIS
     Route: 065
  8. MEROPENEM [Concomitant]
     Route: 065
  9. FLUCONAZOLE [Concomitant]
     Route: 065

REACTIONS (2)
  - DRUG INEFFECTIVE [None]
  - SEPTIC SHOCK [None]
